FAERS Safety Report 25307557 (Version 1)
Quarter: 2025Q2

REPORT INFORMATION
  Report Type: Spontaneous
  Country: GB (occurrence: GB)
  Receive Date: 20250513
  Receipt Date: 20250513
  Transmission Date: 20250717
  Serious: Yes (Other)
  Sender: SANDOZ
  Company Number: None

PATIENT
  Age: 32 Year
  Sex: Female
  Weight: 80 kg

DRUGS (2)
  1. MOMETASONE [Suspect]
     Active Substance: MOMETASONE
     Indication: Headache
     Route: 065
     Dates: start: 20250415
  2. BECLOMETHASONE\FORMOTEROL [Concomitant]
     Active Substance: BECLOMETHASONE\FORMOTEROL
     Indication: Asthma
     Route: 065
     Dates: start: 20230506

REACTIONS (1)
  - Oral candidiasis [Not Recovered/Not Resolved]

NARRATIVE: CASE EVENT DATE: 20250501
